FAERS Safety Report 6656600-1 (Version None)
Quarter: 2010Q1

REPORT INFORMATION
  Report Type: 
  Country: None (occurrence: None)
  Receive Date: 20100329
  Receipt Date: 20090925
  Transmission Date: 20100710
  Serious: No
  Sender: FDA-Public Use
  Company Number: US-BAUSCH-2009BL004892

PATIENT
  Age: 41 Year
  Sex: Male

DRUGS (3)
  1. FLUNISOLIDE [Suspect]
     Indication: HYPERSENSITIVITY
     Route: 045
     Dates: start: 20090915, end: 20090921
  2. ZYRTEC-D 12 HOUR [Concomitant]
     Indication: HYPERSENSITIVITY
     Route: 048
  3. METOPROLOL [Concomitant]
     Indication: HYPERTENSION

REACTIONS (1)
  - NASAL DISCOMFORT [None]
